FAERS Safety Report 25966938 (Version 2)
Quarter: 2025Q4

REPORT INFORMATION
  Report Type: Spontaneous
  Country: US (occurrence: None)
  Receive Date: 20251028
  Receipt Date: 20251215
  Transmission Date: 20260117
  Serious: No
  Sender: UCB
  Company Number: US-UCBSA-2025036264

PATIENT
  Age: 38 Year

DRUGS (2)
  1. BIMZELX [Suspect]
     Active Substance: BIMEKIZUMAB-BKZX
     Indication: Psoriasis
     Dosage: 320 MILLIGRAM, EV 4 WEEKS
  2. TREMFYA [Concomitant]
     Active Substance: GUSELKUMAB
     Indication: Product used for unknown indication
     Dosage: UNK

REACTIONS (3)
  - Psoriasis [Unknown]
  - Folliculitis [Recovered/Resolved]
  - Therapeutic product effect incomplete [Unknown]
